FAERS Safety Report 9995918 (Version 1)
Quarter: 2014Q1

REPORT INFORMATION
  Report Type: Spontaneous
  Country: US (occurrence: US)
  Receive Date: 20140311
  Receipt Date: 20140311
  Transmission Date: 20141002
  Serious: No
  Sender: FDA-Public Use
  Company Number: US-ROXANE LABORATORIES, INC.-2014-RO-00399RO

PATIENT
  Sex: Male

DRUGS (2)
  1. IPRATROPIUM BROMIDE NASAL SOLUTION, 0.06% [Suspect]
     Indication: RHINORRHOEA
     Route: 055
     Dates: start: 20131021
  2. UNSPECIFIED DIABETIC MEDICATION [Concomitant]
     Indication: TYPE 1 DIABETES MELLITUS
     Route: 065

REACTIONS (1)
  - Diplopia [Unknown]
